FAERS Safety Report 25211316 (Version 1)
Quarter: 2025Q2

REPORT INFORMATION
  Report Type: Report from Study
  Country: CZ (occurrence: CZ)
  Receive Date: 20250417
  Receipt Date: 20250417
  Transmission Date: 20250717
  Serious: Yes (Other)
  Sender: ABBVIE
  Company Number: CZ-ABBVIE-6225740

PATIENT
  Age: 56 Year
  Sex: Male

DRUGS (1)
  1. RINVOQ [Suspect]
     Active Substance: UPADACITINIB
     Indication: Rheumatoid arthritis
     Route: 048
     Dates: start: 20230418

REACTIONS (2)
  - Retinal tear [Recovered/Resolved]
  - Noninfective retinitis [Recovered/Resolved]

NARRATIVE: CASE EVENT DATE: 20241019
